FAERS Safety Report 5727092-1 (Version None)
Quarter: 2008Q2

REPORT INFORMATION
  Report Type: 
  Country: None (occurrence: None)
  Receive Date: 20080430
  Receipt Date: 20080415
  Transmission Date: 20081010
  Serious: Yes (Hospitalization)
  Sender: FDA-Public Use
  Company Number: 2008000859

PATIENT
  Age: 67 Year
  Sex: Female

DRUGS (4)
  1. ERLOTINIB (ERLOTINIB HCL) (TABLET) (ERLOTINIB HCL) [Suspect]
     Indication: LUNG ADENOCARCINOMA
     Dosage: (150 MG, QD), ORAL
     Route: 048
     Dates: start: 20080307, end: 20080311
  2. LENDORM [Concomitant]
  3. MUCODYNE (CARBOCISTEINE) [Concomitant]
  4. THYRADIN (THYROID) [Concomitant]

REACTIONS (1)
  - PNEUMOTHORAX [None]
